FAERS Safety Report 18153911 (Version 6)
Quarter: 2020Q4

REPORT INFORMATION
  Report Type: Report from Study
  Country: US (occurrence: US)
  Receive Date: 20200816
  Receipt Date: 20201120
  Transmission Date: 20210113
  Serious: Yes (Hospitalization, Other)
  Sender: FDA-Public Use
  Company Number: NVSC2020US224744

PATIENT
  Age: 62 Year
  Sex: Male

DRUGS (2)
  1. ENTRESTO [Suspect]
     Active Substance: SACUBITRIL\VALSARTAN
     Route: 048
  2. ENTRESTO [Suspect]
     Active Substance: SACUBITRIL\VALSARTAN
     Indication: PRODUCT USED FOR UNKNOWN INDICATION
     Dosage: UNK, BID
     Route: 048

REACTIONS (14)
  - Feeling cold [Not Recovered/Not Resolved]
  - Decreased appetite [Unknown]
  - Somnolence [Unknown]
  - Cough [Unknown]
  - Asthenia [Unknown]
  - Thrombosis [Not Recovered/Not Resolved]
  - Atrial flutter [Unknown]
  - Oedema peripheral [Not Recovered/Not Resolved]
  - Wound [Unknown]
  - Mobility decreased [Not Recovered/Not Resolved]
  - Catheterisation cardiac abnormal [Unknown]
  - Abdominal pain upper [Unknown]
  - Dyspnoea [Unknown]
  - Fluid retention [Unknown]
